FAERS Safety Report 6527674-3 (Version None)
Quarter: 2010Q1

REPORT INFORMATION
  Report Type: 
  Country: None (occurrence: None)
  Receive Date: 20100105
  Receipt Date: 20091231
  Transmission Date: 20100710
  Serious: Yes (Hospitalization, Other)
  Sender: FDA-Public Use
  Company Number: US-MERCK-0901USA04279

PATIENT
  Age: 63 Year
  Sex: Female

DRUGS (1)
  1. FOSAMAX [Suspect]
     Indication: OSTEOPOROSIS
     Route: 048
     Dates: end: 20060701

REACTIONS (5)
  - ABSCESS [None]
  - BONE DENSITY DECREASED [None]
  - EMOTIONAL DISTRESS [None]
  - IMPAIRED HEALING [None]
  - OSTEONECROSIS [None]
